FAERS Safety Report 10769652 (Version 5)
Quarter: 2015Q3

REPORT INFORMATION
  Report Type: Spontaneous
  Country: US (occurrence: US)
  Receive Date: 20150206
  Receipt Date: 20150716
  Transmission Date: 20151125
  Serious: Yes (Death, Hospitalization, Other)
  Sender: FDA-Public Use
  Company Number: US-BAXTER-2015BAX005785

PATIENT
  Sex: Male

DRUGS (13)
  1. ALDACTONE [Concomitant]
     Active Substance: SPIRONOLACTONE
     Indication: PRODUCT USED FOR UNKNOWN INDICATION
     Route: 065
  2. ALLOPURINOL. [Suspect]
     Active Substance: ALLOPURINOL
     Indication: PRODUCT USED FOR UNKNOWN INDICATION
     Route: 048
  3. ASA [Concomitant]
     Active Substance: ASPIRIN
     Indication: PRODUCT USED FOR UNKNOWN INDICATION
     Route: 048
  4. FLOMAX [Concomitant]
     Active Substance: TAMSULOSIN HYDROCHLORIDE
     Indication: BENIGN PROSTATIC HYPERPLASIA
     Route: 048
  5. DIANEAL LOW CALCIUM PERITONEAL DIALYSIS SOLUTION WITH DEXTROSE [Suspect]
     Active Substance: CALCIUM CHLORIDE\DEXTROSE\MAGNESIUM CHLORIDE\SODIUM CHLORIDE\SODIUM LACTATE
     Indication: CHRONIC KIDNEY DISEASE
     Route: 033
     Dates: end: 20150127
  6. NOVOLOG [Concomitant]
     Active Substance: INSULIN ASPART
     Indication: DIABETES MELLITUS
     Dosage: SLIDING SCALE
     Route: 058
  7. LASIX [Concomitant]
     Active Substance: FUROSEMIDE
     Indication: PRODUCT USED FOR UNKNOWN INDICATION
     Route: 065
  8. MAGNESIUM OXIDE. [Concomitant]
     Active Substance: MAGNESIUM OXIDE
     Indication: PRODUCT USED FOR UNKNOWN INDICATION
     Route: 048
  9. PLAVIX [Concomitant]
     Active Substance: CLOPIDOGREL BISULFATE
     Indication: PRODUCT USED FOR UNKNOWN INDICATION
     Route: 048
  10. POTASSIUM CHLORIDE. [Concomitant]
     Active Substance: POTASSIUM CHLORIDE
     Indication: PRODUCT USED FOR UNKNOWN INDICATION
     Route: 065
  11. EXTRANEAL [Suspect]
     Active Substance: CALCIUM CHLORIDE\ICODEXTRIN\MAGNESIUM CHLORIDE\SODIUM CHLORIDE\SODIUM LACTATE
     Indication: PERITONEAL DIALYSIS
     Route: 033
     Dates: end: 20150127
  12. COREG [Concomitant]
     Active Substance: CARVEDILOL
     Indication: BLOOD PRESSURE MEASUREMENT
     Route: 048
  13. NORVASC [Concomitant]
     Active Substance: AMLODIPINE BESYLATE
     Indication: BLOOD PRESSURE MEASUREMENT
     Route: 065

REACTIONS (31)
  - Multi-organ failure [Fatal]
  - Rhinorrhoea [Unknown]
  - Blood urine present [Unknown]
  - Hyperbilirubinaemia [Unknown]
  - Acquired phimosis [Unknown]
  - Dyspnoea [Unknown]
  - Pneumoperitoneum [Unknown]
  - Atrial fibrillation [Unknown]
  - Atrioventricular block second degree [Unknown]
  - Cardiac failure congestive [Unknown]
  - Sepsis [Unknown]
  - Peritonitis bacterial [Not Recovered/Not Resolved]
  - Hypotension [Unknown]
  - Peritoneal effluent abnormal [Unknown]
  - Fungaemia [Unknown]
  - Dehydration [Unknown]
  - Respiratory failure [Unknown]
  - Hepatic enzyme increased [Unknown]
  - Cardiac valve vegetation [Unknown]
  - Clostridium difficile colitis [Unknown]
  - Septic shock [Fatal]
  - Disease complication [Unknown]
  - Tachycardia [Unknown]
  - Infection [Unknown]
  - Oxygen saturation decreased [Unknown]
  - Fungal infection [Unknown]
  - Productive cough [Unknown]
  - Diplopia [Unknown]
  - Haematochezia [Unknown]
  - Hypotension [Unknown]
  - Leukocytosis [Unknown]

NARRATIVE: CASE EVENT DATE: 2015
